FAERS Safety Report 20897581 (Version 1)
Quarter: 2022Q2

REPORT INFORMATION
  Report Type: Spontaneous
  Country: US (occurrence: US)
  Receive Date: 20220531
  Receipt Date: 20220531
  Transmission Date: 20220721
  Serious: No
  Sender: FDA-Public Use
  Company Number: US-PFIZER INC-202200765595

PATIENT
  Age: 63 Year
  Sex: Female
  Weight: 55.79 kg

DRUGS (1)
  1. PAXLOVID [Suspect]
     Active Substance: NIRMATRELVIR\RITONAVIR
     Indication: COVID-19 treatment
     Dosage: UNK, 2X/DAY (THREE TABLETS IN THE MORNING THREE TABLETS IN THE EVENING)
     Route: 048
     Dates: start: 20220525

REACTIONS (2)
  - Dysgeusia [Recovering/Resolving]
  - Insomnia [Unknown]

NARRATIVE: CASE EVENT DATE: 20220525
